FAERS Safety Report 5943484-X (Version None)
Quarter: 2008Q4

REPORT INFORMATION
  Report Type: 
  Country: None (occurrence: None)
  Receive Date: 20081106
  Receipt Date: 20081029
  Transmission Date: 20090506
  Serious: Yes (Hospitalization)
  Sender: FDA-Public Use
  Company Number: JP-MERCK-0802USA03231

PATIENT
  Age: 26 Year
  Sex: Female

DRUGS (4)
  1. DECADRON [Suspect]
     Indication: ANTI-SS-A ANTIBODY POSITIVE
     Route: 048
     Dates: start: 20070802, end: 20070926
  2. DECADRON [Suspect]
     Route: 048
     Dates: start: 20070927, end: 20071024
  3. DECADRON [Suspect]
     Route: 048
     Dates: start: 20071025, end: 20071031
  4. DECADRON [Suspect]
     Route: 048
     Dates: start: 20071101, end: 20071107

REACTIONS (2)
  - AMNIOTIC FLUID VOLUME DECREASED [None]
  - DRUG EXPOSURE DURING PREGNANCY [None]
